FAERS Safety Report 21690842 (Version 1)
Quarter: 2022Q4

REPORT INFORMATION
  Report Type: Report from Study
  Country: CA (occurrence: CA)
  Receive Date: 20221207
  Receipt Date: 20221207
  Transmission Date: 20230113
  Serious: Yes (Hospitalization, Other)
  Sender: FDA-Public Use
  Company Number: CA-HLS-202000142

PATIENT
  Age: 56 Year
  Sex: Male

DRUGS (6)
  1. CLOZARIL [Suspect]
     Active Substance: CLOZAPINE
     Route: 065
     Dates: start: 20200114, end: 20200129
  2. QUETIAPINE [Concomitant]
     Active Substance: QUETIAPINE
     Route: 065
  3. CITALOPRAM [Concomitant]
     Active Substance: CITALOPRAM HYDROBROMIDE
     Route: 065
  4. ABILIFY [Concomitant]
     Active Substance: ARIPIPRAZOLE
     Route: 065
  5. CARBAMAZEPINE [Concomitant]
     Active Substance: CARBAMAZEPINE
     Dosage: 1 IN THE MORNING AND 2 AT BEDTIME
     Route: 065
  6. ESCITALOPRAM [Concomitant]
     Active Substance: ESCITALOPRAM OXALATE
     Dosage: 1.5 TABLETS DAILY
     Route: 065

REACTIONS (23)
  - Aortic dilatation [Unknown]
  - Atelectasis [Unknown]
  - C-reactive protein increased [Unknown]
  - Blood cholesterol increased [Unknown]
  - Pulmonary physical examination abnormal [Unknown]
  - High density lipoprotein decreased [Unknown]
  - Low density lipoprotein increased [Unknown]
  - Bundle branch block left [Unknown]
  - Dyspepsia [Unknown]
  - Nausea [Unknown]
  - Ventricular hypertrophy [Unknown]
  - Gynaecomastia [Unknown]
  - Monocyte count increased [Unknown]
  - Electrocardiogram QRS complex shortened [Unknown]
  - Thyroid mass [Unknown]
  - Non-high-density lipoprotein cholesterol increased [Unknown]
  - Acute myocardial infarction [Unknown]
  - Atrial enlargement [Unknown]
  - Red blood cell count increased [Recovered/Resolved]
  - Blood triglycerides increased [Unknown]
  - Troponin I [Unknown]
  - Troponin T increased [Recovered/Resolved]
  - White blood cell count increased [Recovered/Resolved]

NARRATIVE: CASE EVENT DATE: 20200121
